FAERS Safety Report 7797357-0 (Version None)
Quarter: 2011Q4

REPORT INFORMATION
  Report Type: 
  Country: None (occurrence: None)
  Receive Date: 20111005
  Receipt Date: 20110927
  Transmission Date: 20120403
  Serious: Yes (Other)
  Sender: FDA-Public Use
  Company Number: US-RB-025493-11

PATIENT
  Age: 30 Year
  Sex: Male

DRUGS (6)
  1. PROZAC [Concomitant]
     Indication: DEPRESSION
     Dosage: START DATE: AS A TEENAGER
     Route: 065
  2. REGULAR INSULIN [Concomitant]
     Indication: DIABETES MELLITUS
     Dosage: VARIED DAILY
     Route: 065
  3. KLONOPIN [Suspect]
     Indication: PANIC DISORDER
     Route: 048
  4. LANTUS [Concomitant]
     Indication: DIABETES MELLITUS
     Dosage: DAILY
     Route: 065
     Dates: start: 20110501
  5. SUBOXONE [Suspect]
     Indication: DRUG DEPENDENCE
     Dosage: SUBLINGUAL FILM; 12 MG ALTERNATES WITH 10MG EVERY OTHER DAY
     Route: 060
     Dates: start: 20110401
  6. MULTIPLE BENZODIAZEPINES [Suspect]
     Indication: DEPENDENCE
     Dosage: UNIT DOSE VARIED; HIGH DOSES EVERY HOUR OR TWO
     Route: 065
     Dates: start: 20110501, end: 20110601

REACTIONS (16)
  - DRUG ABUSE [None]
  - FLUID RETENTION [None]
  - FEELING ABNORMAL [None]
  - BLOOD GLUCOSE INCREASED [None]
  - EAR INFECTION [None]
  - OFF LABEL USE [None]
  - MEMORY IMPAIRMENT [None]
  - INFECTION [None]
  - CONDITION AGGRAVATED [None]
  - DYSGEUSIA [None]
  - LOSS OF CONSCIOUSNESS [None]
  - ACTIVITIES OF DAILY LIVING IMPAIRED [None]
  - PNEUMONIA [None]
  - WEIGHT DECREASED [None]
  - GLYCOSYLATED HAEMOGLOBIN INCREASED [None]
  - EYE INFECTION [None]
